FAERS Safety Report 19359538 (Version 1)
Quarter: 2021Q2

REPORT INFORMATION
  Report Type: Spontaneous
  Country: IT (occurrence: IT)
  Receive Date: 20210602
  Receipt Date: 20210602
  Transmission Date: 20210717
  Serious: Yes (Hospitalization)
  Sender: FDA-Public Use
  Company Number: IT-ACCORD-226880

PATIENT
  Age: 80 Year
  Sex: Male
  Weight: 70 kg

DRUGS (1)
  1. OXALIPLATIN ACCORD [Suspect]
     Active Substance: OXALIPLATIN
     Indication: COLON NEOPLASM
     Route: 042
     Dates: start: 20210325, end: 20210325

REACTIONS (4)
  - Tremor [Unknown]
  - Oxygen saturation decreased [Unknown]
  - Nausea [Unknown]
  - Hyperthermia [Unknown]

NARRATIVE: CASE EVENT DATE: 20210325
